FAERS Safety Report 7262655-6 (Version None)
Quarter: 2011Q1

REPORT INFORMATION
  Report Type: 
  Country: None (occurrence: None)
  Receive Date: 20110130
  Receipt Date: 20100923
  Transmission Date: 20110831
  Serious: No
  Sender: FDA-Public Use
  Company Number: US-ABBOTT-10P-163-0673607-00

PATIENT
  Sex: Female
  Weight: 70.37 kg

DRUGS (2)
  1. HUMIRA [Suspect]
     Indication: RHEUMATOID ARTHRITIS
     Dates: start: 20100301, end: 20100801
  2. HUMIRA [Suspect]
     Dates: start: 20100901

REACTIONS (6)
  - FEELING COLD [None]
  - TINEA PEDIS [None]
  - ERYTHEMA [None]
  - DECREASED APPETITE [None]
  - BACTERIAL INFECTION [None]
  - OEDEMA PERIPHERAL [None]
